FAERS Safety Report 23426328 (Version 1)
Quarter: 2024Q1

REPORT INFORMATION
  Report Type: Spontaneous
  Country: CA (occurrence: CA)
  Receive Date: 20240122
  Receipt Date: 20240122
  Transmission Date: 20240410
  Serious: Yes (Other)
  Sender: FDA-Public Use
  Company Number: None

PATIENT
  Age: 52 Year
  Sex: Female

DRUGS (1)
  1. MONOFERRIC [Suspect]
     Active Substance: FERRIC DERISOMALTOSE
     Indication: Anaemia
     Route: 050

REACTIONS (14)
  - Anxiety [Unknown]
  - Chest discomfort [Unknown]
  - Dizziness [Unknown]
  - Dyspnoea [Unknown]
  - Feeling abnormal [Unknown]
  - Flushing [Unknown]
  - Heart rate increased [Unknown]
  - Heart rate irregular [Unknown]
  - Hypokinesia [Unknown]
  - Hypopnoea [Unknown]
  - Limb discomfort [Unknown]
  - Miosis [Unknown]
  - Nausea [Unknown]
  - Palpitations [Unknown]
